FAERS Safety Report 5655842-1 (Version None)
Quarter: 2008Q1

REPORT INFORMATION
  Report Type: 
  Country: None (occurrence: None)
  Receive Date: 20080307
  Receipt Date: 20080225
  Transmission Date: 20080703
  Serious: Yes (Other)
  Sender: FDA-Public Use
  Company Number: CA-PFIZER INC-2008009288

PATIENT
  Age: 48 Year
  Sex: Male

DRUGS (15)
  1. DILANTIN [Suspect]
     Indication: MUSCLE SPASMS
     Dosage: DAILY DOSE:400MG
     Route: 048
  2. MORPHINE [Suspect]
  3. CLONAZEPAM [Concomitant]
  4. TEMAZEPAM [Concomitant]
  5. BACLOFEN [Concomitant]
  6. MELOXICAM [Concomitant]
  7. ASPIRIN [Concomitant]
  8. NEXIUM [Concomitant]
  9. ARTIFICIAL TEARS [Concomitant]
  10. BECLOMETHASONE DIPROPIONATE [Concomitant]
  11. VITAMINS [Concomitant]
  12. CALCIUM [Concomitant]
  13. MAGNESIUM [Concomitant]
  14. ALL OTHER THERAPEUTIC PRODUCTS [Concomitant]
  15. VITAMIN D [Concomitant]

REACTIONS (6)
  - ACTIVITIES OF DAILY LIVING IMPAIRED [None]
  - ANTICONVULSANT DRUG LEVEL INCREASED [None]
  - DRUG INEFFECTIVE [None]
  - DRUG LEVEL FLUCTUATING [None]
  - MYOMECTOMY [None]
  - PAIN [None]
